FAERS Safety Report 4849336-0 (Version None)
Quarter: 2005Q4

REPORT INFORMATION
  Report Type: 
  Country: None (occurrence: None)
  Receive Date: 20051207
  Receipt Date: 20051128
  Transmission Date: 20060501
  Serious: Yes (Hospitalization, Other)
  Sender: FDA-Public Use
  Company Number: KII-2005-0019965

PATIENT
  Age: 44 Year
  Sex: Female

DRUGS (5)
  1. MORPHINE SULFATE [Suspect]
     Indication: BACK PAIN
     Dosage: ORAL
     Route: 048
  2. METHOCARBAMOL [Suspect]
  3. CYCLOBENZAPRINE HCL [Suspect]
  4. PAROXETINE (PAROXETINE) [Suspect]
  5. MUSCLE RELAXANTS() [Suspect]
     Indication: DRUG USE FOR UNKNOWN INDICATION

REACTIONS (3)
  - MIOSIS [None]
  - SEDATION [None]
  - UNRESPONSIVE TO PAIN STIMULI [None]
